FAERS Safety Report 7510140-6 (Version None)
Quarter: 2011Q2

REPORT INFORMATION
  Report Type: 
  Country: None (occurrence: None)
  Receive Date: 20110527
  Receipt Date: 20110518
  Transmission Date: 20111010
  Serious: Yes (Other)
  Sender: FDA-Public Use
  Company Number: JP-ASTRAZENECA-2011SE30543

PATIENT
  Age: 69 Year
  Sex: Female
  Weight: 73 kg

DRUGS (5)
  1. DROPERIDOL [Suspect]
  2. DIPRIVAN [Suspect]
     Dosage: 3MG/KG/HR
     Route: 042
  3. DIPRIVAN [Suspect]
     Indication: SEDATION
     Route: 042
  4. MARCAINE [Concomitant]
     Route: 029
  5. EPHEDRIN [Concomitant]
     Route: 065

REACTIONS (1)
  - RESPIRATORY DEPRESSION [None]
